FAERS Safety Report 16938596 (Version 1)
Quarter: 2019Q4

REPORT INFORMATION
  Report Type: Spontaneous
  Country: US (occurrence: US)
  Receive Date: 20191019
  Receipt Date: 20191019
  Transmission Date: 20200122
  Serious: Yes (Other)
  Sender: FDA-Public Use
  Company Number: US-TEVA-2019-US-1125827

PATIENT
  Age: 67 Year
  Sex: Female

DRUGS (1)
  1. COPAXONE [Suspect]
     Active Substance: GLATIRAMER ACETATE
     Route: 065

REACTIONS (10)
  - Back pain [Unknown]
  - Coordination abnormal [Unknown]
  - Fatigue [Recovered/Resolved]
  - Asthenia [Recovering/Resolving]
  - Fall [Unknown]
  - Feeling abnormal [Recovered/Resolved]
  - Parkinson^s disease [Unknown]
  - Somnolence [Recovered/Resolved]
  - Inappropriate schedule of product administration [Unknown]
  - Balance disorder [Recovered/Resolved]

NARRATIVE: CASE EVENT DATE: 20190731
